FAERS Safety Report 6803272-9 (Version None)
Quarter: 2010Q2

REPORT INFORMATION
  Report Type: 
  Country: None (occurrence: None)
  Receive Date: 20100628
  Receipt Date: 20100413
  Transmission Date: 20101027
  Serious: No
  Sender: FDA-Public Use
  Company Number: AU-ASTRAZENECA-2010SE16385

PATIENT
  Age: 938 Month
  Sex: Male

DRUGS (1)
  1. ZOLADEX [Suspect]
     Indication: PROSTATE CANCER
     Route: 058
     Dates: start: 20100101

REACTIONS (3)
  - FURUNCLE [None]
  - HOT FLUSH [None]
  - PAIN IN EXTREMITY [None]
